FAERS Safety Report 5888393-X (Version None)
Quarter: 2008Q3

REPORT INFORMATION
  Report Type: 
  Country: None (occurrence: None)
  Receive Date: 20080916
  Receipt Date: 20080916
  Transmission Date: 20090109
  Serious: Yes (Other)
  Sender: FDA-Public Use
  Company Number: None

PATIENT
  Sex: Female
  Weight: 102.0593 kg

DRUGS (1)
  1. SIMVASTATIN [Suspect]
     Indication: BLOOD CHOLESTEROL INCREASED
     Dosage: 20 MG 1 X DAY
     Dates: start: 20070701, end: 20080610

REACTIONS (14)
  - ACTIVITIES OF DAILY LIVING IMPAIRED [None]
  - ARTHRALGIA [None]
  - BLOOD CALCIUM INCREASED [None]
  - DYSURIA [None]
  - FATIGUE [None]
  - HEPATIC ENZYME INCREASED [None]
  - JOINT SWELLING [None]
  - MIGRAINE [None]
  - MUSCULOSKELETAL PAIN [None]
  - MYOPATHY [None]
  - MYOSITIS [None]
  - OEDEMA [None]
  - PAIN [None]
  - STRESS AT WORK [None]
